FAERS Safety Report 8585703-X (Version None)
Quarter: 2012Q3

REPORT INFORMATION
  Report Type: 
  Country: None (occurrence: None)
  Receive Date: 20120802
  Receipt Date: 20120802
  Transmission Date: 20120928
  Serious: Yes (Hospitalization, Other)
  Sender: FDA-Public Use
  Company Number: None

PATIENT
  Sex: Female

DRUGS (6)
  1. LISINOPRIL [Concomitant]
  2. SYNTHROID [Concomitant]
  3. PRADAXA [Suspect]
     Indication: THROMBOSIS
     Dosage: 150 MG WTICE A DAY PO
     Route: 048
     Dates: start: 20111201, end: 20120312
  4. PRADAXA [Suspect]
     Indication: ANTICOAGULANT THERAPY
     Dosage: 150 MG WTICE A DAY PO
     Route: 048
     Dates: start: 20111201, end: 20120312
  5. PRAVASTATIN [Concomitant]
  6. AMLODIPINE [Concomitant]

REACTIONS (2)
  - MUSCULOSKELETAL PAIN [None]
  - LOSS OF CONSCIOUSNESS [None]
